FAERS Safety Report 16206460 (Version 2)
Quarter: 2019Q3

REPORT INFORMATION
  Report Type: Spontaneous
  Country: JP (occurrence: JP)
  Receive Date: 20190417
  Receipt Date: 20190729
  Transmission Date: 20191004
  Serious: Yes (Life-Threatening)
  Sender: FDA-Public Use
  Company Number: JP-ROCHE-2304939

PATIENT
  Age: 56 Year
  Sex: Female
  Weight: 56 kg

DRUGS (5)
  1. ACTEMRA [Suspect]
     Active Substance: TOCILIZUMAB
     Indication: STILL^S DISEASE
     Route: 041
     Dates: start: 20120412
  2. METHOTREXATE. [Concomitant]
     Active Substance: METHOTREXATE
     Indication: OFF LABEL USE
  3. ACTEMRA [Suspect]
     Active Substance: TOCILIZUMAB
     Indication: OFF LABEL USE
     Route: 041
     Dates: start: 20120517
  4. METHOTREXATE. [Concomitant]
     Active Substance: METHOTREXATE
     Indication: STILL^S DISEASE
     Dosage: DOSAGE IS UNCERTAIN.
     Route: 065
  5. ACTEMRA [Suspect]
     Active Substance: TOCILIZUMAB
     Route: 041
     Dates: start: 20120614, end: 20130516

REACTIONS (8)
  - Musculoskeletal pain [Unknown]
  - Haemophagocytic lymphohistiocytosis [Recovered/Resolved]
  - Neck pain [Unknown]
  - Off label use [Unknown]
  - Intentional product use issue [Unknown]
  - Disseminated intravascular coagulation [Recovered/Resolved]
  - Liver disorder [Recovered/Resolved]
  - Tenosynovitis [Unknown]

NARRATIVE: CASE EVENT DATE: 20130614
